FAERS Safety Report 8295617-0 (Version None)
Quarter: 2012Q2

REPORT INFORMATION
  Report Type: 
  Country: None (occurrence: None)
  Receive Date: 20120418
  Receipt Date: 20120412
  Transmission Date: 20120825
  Serious: Yes (Hospitalization)
  Sender: FDA-Public Use
  Company Number: PHHY2012MX028234

PATIENT
  Sex: Male

DRUGS (7)
  1. CHEMOTHERAPEUTICS NOS [Concomitant]
     Dosage: UNK UKN, UNK
  2. BISOPROLOL FUMARATE [Concomitant]
     Indication: CARDIAC DISORDER
     Dosage: 0.5 DF, BY DAY
     Dates: start: 20100401
  3. METFORMIN HCL [Concomitant]
     Indication: DIABETES MELLITUS
     Dosage: UNK UKN, QD
     Dates: start: 20110401
  4. DEXAMETHASONE [Concomitant]
     Dosage: UNK UKN, PRN
  5. ZOMETA [Suspect]
     Indication: BONE NEOPLASM MALIGNANT
     Dosage: 4 MG ONCE A MONTH
     Route: 042
     Dates: start: 20090601
  6. DIOVAN [Suspect]
     Dosage: 320 MG, UNK
  7. FUROSEMIDE [Concomitant]
     Indication: DIABETES MELLITUS
     Dosage: 1 DF, UNK
     Dates: start: 20110401

REACTIONS (2)
  - DIZZINESS [None]
  - FALL [None]
